FAERS Safety Report 7366589-8 (Version None)
Quarter: 2011Q1

REPORT INFORMATION
  Report Type: 
  Country: None (occurrence: None)
  Receive Date: 20110317
  Receipt Date: 20110317
  Transmission Date: 20110831
  Serious: Yes (Other)
  Sender: FDA-Public Use
  Company Number: None

PATIENT
  Sex: Female
  Weight: 111.1313 kg

DRUGS (1)
  1. LYRICA [Suspect]
     Indication: FIBROMYALGIA
     Dosage: 100 MILLIGRAMS THREE TIMES A DAY PO
     Route: 048
     Dates: start: 20110311, end: 20110316

REACTIONS (12)
  - BLOOD PRESSURE INCREASED [None]
  - DYSKINESIA [None]
  - GAIT DISTURBANCE [None]
  - RESPIRATORY RATE INCREASED [None]
  - HEART RATE IRREGULAR [None]
  - DISTURBANCE IN ATTENTION [None]
  - DIPLOPIA [None]
  - HYPOVENTILATION [None]
  - BLOOD PRESSURE [None]
  - ALCOHOL POISONING [None]
  - HALLUCINATION [None]
  - VISION BLURRED [None]
